FAERS Safety Report 12254187 (Version 3)
Quarter: 2016Q2

REPORT INFORMATION
  Report Type: Report from Study
  Country: CA (occurrence: CA)
  Receive Date: 20160411
  Receipt Date: 20160420
  Transmission Date: 20160815
  Serious: Yes (Other)
  Sender: FDA-Public Use
  Company Number: CA-JNJFOC-20160406417

PATIENT
  Age: 13 Year
  Sex: Female
  Weight: 48.7 kg

DRUGS (2)
  1. REMICADE [Suspect]
     Active Substance: INFLIXIMAB
     Indication: CROHN^S DISEASE
     Route: 042
  2. REMICADE [Suspect]
     Active Substance: INFLIXIMAB
     Indication: CROHN^S DISEASE
     Route: 042
     Dates: start: 20151006

REACTIONS (4)
  - Product use issue [Unknown]
  - Abdominal pain [Unknown]
  - Diarrhoea haemorrhagic [Unknown]
  - Off label use [Unknown]

NARRATIVE: CASE EVENT DATE: 20151006
